FAERS Safety Report 5472793-6 (Version None)
Quarter: 2007Q4

REPORT INFORMATION
  Report Type: 
  Country: None (occurrence: None)
  Receive Date: 20071001
  Receipt Date: 20061108
  Transmission Date: 20080405
  Serious: No
  Sender: FDA-Public Use
  Company Number: US-ASTRAZENECA-2006UW22485

PATIENT
  Age: 76 Year
  Sex: Female

DRUGS (2)
  1. ARIMIDEX [Suspect]
     Indication: BREAST CANCER IN SITU
     Route: 048
     Dates: start: 20060301
  2. VITAMINS [Concomitant]

REACTIONS (7)
  - ARTHRALGIA [None]
  - CHROMATURIA [None]
  - ILL-DEFINED DISORDER [None]
  - INSOMNIA [None]
  - IRRITABILITY [None]
  - NAUSEA [None]
  - URINARY TRACT INFECTION [None]
